FAERS Safety Report 6746868-5 (Version None)
Quarter: 2010Q2

REPORT INFORMATION
  Report Type: 
  Country: None (occurrence: None)
  Receive Date: 20100528
  Receipt Date: 20100309
  Transmission Date: 20101027
  Serious: No
  Sender: FDA-Public Use
  Company Number: US-ASTRAZENECA-2010SE11340

PATIENT
  Sex: Female

DRUGS (2)
  1. PRILOSEC OTC [Suspect]
     Route: 048
     Dates: start: 20100306, end: 20100308
  2. CALCIUM WITH VITAMIN D /00944201/ [Concomitant]
     Dosage: UNKNOWN

REACTIONS (5)
  - ABDOMINAL PAIN UPPER [None]
  - DIZZINESS [None]
  - EAR DISCOMFORT [None]
  - FAECES DISCOLOURED [None]
  - MUSCULAR WEAKNESS [None]
